FAERS Safety Report 16785006 (Version 3)
Quarter: 2019Q4

REPORT INFORMATION
  Report Type: Spontaneous
  Country: US (occurrence: US)
  Receive Date: 20190909
  Receipt Date: 20191001
  Transmission Date: 20200122
  Serious: No
  Sender: FDA-Public Use
  Company Number: US-ALKERMES INC.-ALK-2019-004636

PATIENT
  Age: 35 Year
  Sex: Female

DRUGS (1)
  1. VIVITROL [Suspect]
     Active Substance: NALTREXONE
     Indication: DRUG DEPENDENCE
     Dosage: 380 MG, QMO
     Route: 030

REACTIONS (4)
  - Euphoric mood [Unknown]
  - Drug dependence [Recovered/Resolved]
  - Lower limb fracture [Not Recovered/Not Resolved]
  - Therapeutic response decreased [Not Recovered/Not Resolved]
